FAERS Safety Report 13787505 (Version 1)
Quarter: 2017Q3

REPORT INFORMATION
  Report Type: Spontaneous
  Country: US (occurrence: US)
  Receive Date: 20170725
  Receipt Date: 20170725
  Transmission Date: 20171127
  Serious: No
  Sender: FDA-Public Use
  Company Number: US-UNITED THERAPEUTICS-UNT-2017-000134

PATIENT
  Age: 75 Year
  Sex: Female
  Weight: 90.7 kg

DRUGS (6)
  1. ORENITRAM [Suspect]
     Active Substance: TREPROSTINIL
     Dosage: UNK
     Route: 048
  2. ADEMPAS [Suspect]
     Active Substance: RIOCIGUAT
     Indication: PRODUCT USED FOR UNKNOWN INDICATION
     Route: 065
  3. ORENITRAM [Suspect]
     Active Substance: TREPROSTINIL
     Dosage: 0.625 MG, TID
     Route: 048
  4. ORENITRAM [Suspect]
     Active Substance: TREPROSTINIL
     Indication: PULMONARY ARTERIAL HYPERTENSION
     Dosage: 0.125 MG, TID
     Route: 048
     Dates: start: 20161223
  5. ORENITRAM [Suspect]
     Active Substance: TREPROSTINIL
     Dosage: UNK
     Route: 048
  6. OPSUMIT [Concomitant]
     Active Substance: MACITENTAN
     Indication: PRODUCT USED FOR UNKNOWN INDICATION

REACTIONS (22)
  - Neck pain [Unknown]
  - Chest discomfort [Unknown]
  - Pain in extremity [Unknown]
  - Headache [Unknown]
  - Iron deficiency anaemia [Unknown]
  - Oxygen consumption increased [Unknown]
  - Hypoaesthesia [Unknown]
  - Feeling abnormal [Unknown]
  - Muscular weakness [Unknown]
  - Catheterisation cardiac abnormal [Unknown]
  - Limb discomfort [Unknown]
  - Asthenopia [Unknown]
  - Peripheral swelling [Recovered/Resolved]
  - Ingrowing nail [Unknown]
  - Fatigue [Unknown]
  - Diarrhoea [Unknown]
  - Nail operation [Unknown]
  - Back pain [Unknown]
  - Localised infection [Unknown]
  - Oxygen saturation decreased [Unknown]
  - Mobility decreased [Unknown]
  - Dizziness [Unknown]

NARRATIVE: CASE EVENT DATE: 201701
